FAERS Safety Report 17880775 (Version 1)
Quarter: 2020Q2

REPORT INFORMATION
  Report Type: Spontaneous
  Country: AU (occurrence: AU)
  Receive Date: 20200610
  Receipt Date: 20200610
  Transmission Date: 20200714
  Serious: Yes (Other)
  Sender: FDA-Public Use
  Company Number: AU-MYLANLABS-2020M1055323

PATIENT
  Age: 63 Year
  Sex: Female

DRUGS (12)
  1. GABAPENTIN. [Suspect]
     Active Substance: GABAPENTIN
     Indication: HYPERAESTHESIA
  2. GABAPENTIN. [Suspect]
     Active Substance: GABAPENTIN
     Indication: PAIN
  3. TRILEPTAL [Suspect]
     Active Substance: OXCARBAZEPINE
     Indication: HEMIDYSAESTHESIA
     Dosage: 300 MILLIGRAM
     Route: 065
  4. TRILEPTAL [Suspect]
     Active Substance: OXCARBAZEPINE
     Indication: ALLODYNIA
  5. TRILEPTAL [Suspect]
     Active Substance: OXCARBAZEPINE
     Indication: PAIN
  6. OXYCODONE [Suspect]
     Active Substance: OXYCODONE
     Indication: HYPERAESTHESIA
  7. TRILEPTAL [Suspect]
     Active Substance: OXCARBAZEPINE
     Indication: HYPERAESTHESIA
  8. GABAPENTIN. [Suspect]
     Active Substance: GABAPENTIN
     Indication: ALLODYNIA
  9. OXYCODONE [Suspect]
     Active Substance: OXYCODONE
     Indication: PAIN
  10. OXYCODONE [Suspect]
     Active Substance: OXYCODONE
     Indication: HEMIDYSAESTHESIA
     Dosage: 10 MILLIGRAM
     Route: 065
  11. GABAPENTIN. [Suspect]
     Active Substance: GABAPENTIN
     Indication: HEMIDYSAESTHESIA
     Dosage: 300-600MG
     Route: 065
  12. OXYCODONE [Suspect]
     Active Substance: OXYCODONE
     Indication: ALLODYNIA

REACTIONS (1)
  - Drug ineffective [Unknown]
